FAERS Safety Report 18997233 (Version 1)
Quarter: 2021Q1

REPORT INFORMATION
  Report Type: Other
  Country: US (occurrence: US)
  Receive Date: 20210311
  Receipt Date: 20210311
  Transmission Date: 20210420
  Serious: Yes (Other)
  Sender: FDA-Public Use
  Company Number: US-ROCHE-2781622

PATIENT
  Sex: Female

DRUGS (3)
  1. XELODA [Suspect]
     Active Substance: CAPECITABINE
     Indication: NEOPLASM MALIGNANT
     Dosage: TAKE 3 TABLET(S) BY MOUTH EVERY MORNING + TAKE 3 TABLET(S) BY MOUTH EVERY EVENING MONDAY?FRIDAY?500
     Route: 048
  2. XELODA [Suspect]
     Active Substance: CAPECITABINE
     Indication: ANAL CANCER
  3. XELODA [Suspect]
     Active Substance: CAPECITABINE
     Indication: ANAL CANCER

REACTIONS (3)
  - Intentional product use issue [Unknown]
  - Blindness [Unknown]
  - Off label use [Unknown]
